FAERS Safety Report 25984460 (Version 1)
Quarter: 2025Q4

REPORT INFORMATION
  Report Type: Spontaneous
  Country: US (occurrence: US)
  Receive Date: 20251031
  Receipt Date: 20251031
  Transmission Date: 20260118
  Serious: Yes (Other)
  Sender: BAYER HEALTHCARE LLC
  Company Number: US-BAYER-2025A143074

PATIENT
  Age: 69 Year
  Sex: Male

DRUGS (2)
  1. AFRIN ORIGINAL NASAL [Suspect]
     Active Substance: OXYMETAZOLINE HYDROCHLORIDE
     Indication: Hypersensitivity
     Dosage: 2 OR 3 SPRAYS IN EACH NOSTRIL EVERY 12 HOURS. DOSE
     Route: 045
     Dates: start: 20251027, end: 20251028
  2. AFRIN ORIGINAL NASAL [Suspect]
     Active Substance: OXYMETAZOLINE HYDROCHLORIDE
     Indication: Nasopharyngitis

REACTIONS (2)
  - Visual impairment [Recovered/Resolved with Sequelae]
  - Accidental exposure to product [Recovered/Resolved with Sequelae]

NARRATIVE: CASE EVENT DATE: 20251027
